FAERS Safety Report 6244155-5 (Version None)
Quarter: 2009Q2

REPORT INFORMATION
  Report Type: 
  Country: None (occurrence: None)
  Receive Date: 20090623
  Receipt Date: 20090623
  Transmission Date: 20091009
  Serious: Yes (Hospitalization, Other)
  Sender: FDA-Public Use
  Company Number: None

PATIENT
  Age: 60 Year
  Sex: Male
  Weight: 89.8 kg

DRUGS (1)
  1. VANCOMYCIN [Suspect]
     Dosage: 1500 MG OTHER IV
     Route: 042
     Dates: start: 20090529, end: 20090530

REACTIONS (3)
  - PRURITUS [None]
  - RASH [None]
  - URTICARIA [None]
